FAERS Safety Report 4426786-8 (Version None)
Quarter: 2004Q3

REPORT INFORMATION
  Report Type: 
  Country: None (occurrence: None)
  Receive Date: 20040816
  Receipt Date: 20040809
  Transmission Date: 20050211
  Serious: Yes (Other)
  Sender: FDA-Public Use
  Company Number: US-BRISTOL-MYERS SQUIBB COMPANY-12664686

PATIENT
  Age: 39 Year
  Sex: Female
  Weight: 54 kg

DRUGS (2)
  1. TEQUIN [Suspect]
     Indication: SINUSITIS
     Route: 048
     Dates: start: 20031201, end: 20040101
  2. TEQUIN [Suspect]
     Indication: DIVERTICULITIS
     Route: 048
     Dates: start: 20031201, end: 20040101

REACTIONS (3)
  - CONDUCTION DISORDER [None]
  - DISORIENTATION [None]
  - NERVOUSNESS [None]
